FAERS Safety Report 20919737 (Version 8)
Quarter: 2022Q3

REPORT INFORMATION
  Report Type: Report from Study
  Country: FR (occurrence: None)
  Receive Date: 20220606
  Receipt Date: 20220811
  Transmission Date: 20221026
  Serious: Yes (Hospitalization)
  Sender: FDA-Public Use
  Company Number: FR-ROCHE-3092151

PATIENT
  Age: 72 Year
  Sex: Male
  Weight: 68.9 kg

DRUGS (17)
  1. OBINUTUZUMAB [Suspect]
     Active Substance: OBINUTUZUMAB
     Indication: Follicular lymphoma
     Dosage: LAST DOSE OF OBINUTUZUMAB PRIOR TO SAE ON 08/FEB/2022.
     Route: 042
     Dates: start: 20191105
  2. OBINUTUZUMAB [Suspect]
     Active Substance: OBINUTUZUMAB
     Dosage: LAST DOSE OF OBINUTUZUMAB PRIOR TO SAE ON 08/FEB/2022.
     Route: 048
     Dates: start: 20191105
  3. ZANUBRUTINIB [Suspect]
     Active Substance: ZANUBRUTINIB
     Indication: Follicular lymphoma
     Dosage: LAST DOSE OF ZANUBRUTINIB PRIOR TO SAE ON 04/MAY/2022.
     Route: 048
     Dates: start: 20191105
  4. ZANUBRUTINIB [Suspect]
     Active Substance: ZANUBRUTINIB
     Dosage: LAST DOSE OF ZANUBRUTINIB PRIOR TO SAE ON 04/MAY/2022
     Route: 042
     Dates: start: 20191105
  5. VALACYCLOVIR HYDROCHLORIDE [Concomitant]
     Active Substance: VALACYCLOVIR HYDROCHLORIDE
     Indication: Prophylaxis
     Dosage: 500MG/DAY
     Dates: start: 20191107
  6. SILODOSIN [Concomitant]
     Active Substance: SILODOSIN
     Indication: Benign prostatic hyperplasia
     Dosage: 8MG/DAY
     Dates: start: 20191213
  7. PIPERACILLIN SODIUM\TAZOBACTAM SODIUM [Concomitant]
     Active Substance: PIPERACILLIN SODIUM\TAZOBACTAM SODIUM
     Indication: Pyrexia
     Dates: start: 20220506, end: 20220511
  8. BACTRIM [Concomitant]
     Active Substance: SULFAMETHOXAZOLE\TRIMETHOPRIM
     Dosage: 1 TABLET ON MONDAYS, WEDNESDAYS, AND FRIDAYS
     Dates: start: 20220505, end: 20220511
  9. BACTRIM [Concomitant]
     Active Substance: SULFAMETHOXAZOLE\TRIMETHOPRIM
     Route: 048
     Dates: start: 20220512
  10. LEUCOVORIN CALCIUM [Concomitant]
     Active Substance: LEUCOVORIN CALCIUM
     Dosage: 1 TABLET ON TUESDAY
     Route: 048
     Dates: start: 20220512
  11. VALACYCLOVIR HYDROCHLORIDE [Concomitant]
     Active Substance: VALACYCLOVIR HYDROCHLORIDE
     Dosage: 1 TABLET IN THE MORNING AND EVENING
  12. SILODOSIN [Concomitant]
     Active Substance: SILODOSIN
     Dosage: ONE CAPSULE IN THE MORNING
     Dates: start: 20191213
  13. MOVICOL [Concomitant]
     Active Substance: POLYETHYLENE GLYCOL 3350\POTASSIUM CHLORIDE\SODIUM BICARBONATE\SODIUM CHLORIDE
     Dosage: ONE SACHET TO 2 SACHETS PER DAY IF NECESSARY
  14. PANTOPRAZOLE [Concomitant]
     Active Substance: PANTOPRAZOLE
     Dosage: IN THE MORNING FOR 4 WEEKS
  15. PIPERACILLIN SODIUM\TAZOBACTAM SODIUM [Concomitant]
     Active Substance: PIPERACILLIN SODIUM\TAZOBACTAM SODIUM
     Indication: Pyrexia
     Dates: start: 20220506, end: 20220511
  16. CIPROFLOXACIN [Concomitant]
     Active Substance: CIPROFLOXACIN
     Indication: Pyrexia
     Dates: start: 20220610, end: 20220615
  17. DAPTOMYCIN [Concomitant]
     Active Substance: DAPTOMYCIN
     Indication: Pyrexia
     Dates: start: 20220614

REACTIONS (3)
  - COVID-19 [Recovered/Resolved with Sequelae]
  - Oesophageal candidiasis [Recovered/Resolved]
  - Infection [Recovered/Resolved]

NARRATIVE: CASE EVENT DATE: 20220504
